FAERS Safety Report 7539163-8 (Version None)
Quarter: 2011Q2

REPORT INFORMATION
  Report Type: 
  Country: None (occurrence: None)
  Receive Date: 20110610
  Receipt Date: 20030925
  Transmission Date: 20111010
  Serious: Yes (Death, Other)
  Sender: FDA-Public Use
  Company Number: PHFR2003GB03599

PATIENT
  Sex: Female

DRUGS (4)
  1. CITALOPRAM HYDROBROMIDE [Concomitant]
     Dosage: 40MG/DAY
     Route: 065
  2. CLOZAPINE [Suspect]
     Indication: SCHIZOPHRENIA
     Dosage: 600MG/DAY
     Route: 048
     Dates: start: 19971210
  3. BENZHEXOL [Concomitant]
     Dosage: 4MG/DAY
     Route: 065
  4. SULPIRIDE [Concomitant]
     Dosage: 200MG/DAY
     Route: 065

REACTIONS (5)
  - LEFT VENTRICULAR HYPERTROPHY [None]
  - EMPYEMA [None]
  - BRONCHOPNEUMONIA [None]
  - RESPIRATORY FAILURE [None]
  - PLEURAL ADHESION [None]
